FAERS Safety Report 5606116-6 (Version None)
Quarter: 2008Q1

REPORT INFORMATION
  Report Type: 
  Country: None (occurrence: None)
  Receive Date: 20080123
  Receipt Date: 20071109
  Transmission Date: 20080703
  Serious: Yes (Life-Threatening, Hospitalization, Other)
  Sender: FDA-Public Use
  Company Number: 2007VX003025

PATIENT
  Age: 65 Year
  Sex: Female

DRUGS (5)
  1. PROSTIGMIN INJECTION (NEOSTIGMINE METILSULFATE) [Suspect]
     Indication: NEUROMUSCULAR BLOCKADE REVERSAL
  2. PICOLAX [Concomitant]
  3. MIDAZOLAM HCL [Concomitant]
  4. PROPOFOL [Concomitant]
  5. ISOFLURANE [Concomitant]

REACTIONS (4)
  - DIARRHOEA [None]
  - GASTROINTESTINAL ANASTOMOTIC LEAK [None]
  - POST PROCEDURAL COMPLICATION [None]
  - SHOCK [None]
